FAERS Safety Report 22366718 (Version 6)
Quarter: 2023Q4

REPORT INFORMATION
  Report Type: Spontaneous
  Country: CA (occurrence: CA)
  Receive Date: 20230525
  Receipt Date: 20231204
  Transmission Date: 20240109
  Serious: Yes (Other)
  Sender: FDA-Public Use
  Company Number: CA-PFIZER INC-202300147292

PATIENT
  Age: 12 Year
  Sex: Male
  Weight: 36 kg

DRUGS (4)
  1. ABRILADA [Suspect]
     Active Substance: ADALIMUMAB-AFZB
     Indication: Crohn^s disease
     Dosage: 1 DF, WEEK 0: 160 MG, WEEK 2: 80 MG , 40MG Q2 WEEK (2 INJECTIONS)
     Route: 058
     Dates: start: 20230418
  2. ABRILADA [Suspect]
     Active Substance: ADALIMUMAB-AFZB
     Dosage: 1 DF, WEEK 0: 160 MG, WEEK 2: 80 MG , 40MG Q2 WEEK (2 INJECTIONS)
     Route: 058
     Dates: start: 20230419
  3. ABRILADA [Suspect]
     Active Substance: ADALIMUMAB-AFZB
     Dosage: 80 MG ON WEEK 2
     Route: 058
     Dates: start: 20230502
  4. ABRILADA [Suspect]
     Active Substance: ADALIMUMAB-AFZB
     Dosage: 1 DF, WEEK 0: 160 MG, WEEK 2: 80 MG , 40 MG Q2 WEEK
     Route: 058
     Dates: start: 20230516

REACTIONS (9)
  - Bronchitis bacterial [Recovering/Resolving]
  - Injury associated with device [Unknown]
  - Needle issue [Unknown]
  - Scratch [Unknown]
  - Dyspnoea [Recovered/Resolved]
  - Fatigue [Recovered/Resolved]
  - Fear of injection [Unknown]
  - Eczema [Not Recovered/Not Resolved]
  - Off label use [Unknown]

NARRATIVE: CASE EVENT DATE: 20230101
